FAERS Safety Report 14578801 (Version 6)
Quarter: 2018Q3

REPORT INFORMATION
  Report Type: Spontaneous
  Country: FR (occurrence: FR)
  Receive Date: 20180227
  Receipt Date: 20180730
  Transmission Date: 20181010
  Serious: Yes (Other)
  Sender: FDA-Public Use
  Company Number: PHHY2018FR030592

PATIENT
  Age: 38 Year
  Sex: Male
  Weight: 74 kg

DRUGS (1)
  1. FORADIL [Suspect]
     Active Substance: FORMOTEROL FUMARATE
     Indication: ASTHMA
     Dosage: 1 DF, BID
     Route: 055

REACTIONS (2)
  - Foreign body aspiration [Unknown]
  - Throat irritation [Unknown]

NARRATIVE: CASE EVENT DATE: 20171120
